FAERS Safety Report 12203040 (Version 2)
Quarter: 2016Q3

REPORT INFORMATION
  Report Type: Report from Study
  Country: US (occurrence: US)
  Receive Date: 20160323
  Receipt Date: 20160826
  Transmission Date: 20161109
  Serious: Yes (Hospitalization, Disabling, Other)
  Sender: FDA-Public Use
  Company Number: US-ABBVIE-16K-163-1586601-00

PATIENT
  Sex: Male
  Weight: 113.5 kg

DRUGS (11)
  1. HUMIRA [Suspect]
     Active Substance: ADALIMUMAB
     Indication: RHEUMATOID ARTHRITIS
     Route: 058
     Dates: end: 2014
  2. HUMIRA [Suspect]
     Active Substance: ADALIMUMAB
     Route: 058
     Dates: end: 2015
  3. AZULFIDINE [Concomitant]
     Active Substance: SULFASALAZINE
     Indication: RHEUMATOID ARTHRITIS
  4. HUMIRA [Suspect]
     Active Substance: ADALIMUMAB
     Route: 058
     Dates: start: 2015
  5. PLAQUENIL [Concomitant]
     Active Substance: HYDROXYCHLOROQUINE SULFATE
     Indication: RHEUMATOID ARTHRITIS
  6. OMEPRAZOLE. [Concomitant]
     Active Substance: OMEPRAZOLE
     Indication: GASTRIC DISORDER
  7. LISINOPRIL. [Concomitant]
     Active Substance: LISINOPRIL
     Indication: HYPERTENSION
  8. ATORVASTATIN [Concomitant]
     Active Substance: ATORVASTATIN
     Indication: BLOOD CHOLESTEROL INCREASED
  9. AZULFIDINE [Concomitant]
     Active Substance: SULFASALAZINE
     Indication: RHEUMATOID ARTHRITIS
  10. OMEPRAZOLE. [Concomitant]
     Active Substance: OMEPRAZOLE
     Indication: PROPHYLAXIS
  11. LISINOPRIL. [Concomitant]
     Active Substance: LISINOPRIL
     Indication: HYPERTENSION

REACTIONS (18)
  - Cardiac arrest [Recovered/Resolved]
  - Arthropathy [Recovering/Resolving]
  - Chest discomfort [Recovered/Resolved]
  - Asthenia [Recovered/Resolved]
  - Joint stiffness [Recovering/Resolving]
  - Blood creatinine increased [Recovering/Resolving]
  - Paranasal sinus hypersecretion [Recovered/Resolved]
  - Fatigue [Recovered/Resolved]
  - Coronary artery occlusion [Recovered/Resolved]
  - Asthenia [Recovered/Resolved]
  - Pain [Recovering/Resolving]
  - Bronchitis [Recovered/Resolved]
  - Nerve injury [Not Recovered/Not Resolved]
  - Cardiac failure [Recovered/Resolved]
  - Peroneal nerve palsy [Not Recovered/Not Resolved]
  - Compartment syndrome [Recovered/Resolved]
  - Oxygen saturation decreased [Recovered/Resolved]
  - Joint lock [Recovering/Resolving]

NARRATIVE: CASE EVENT DATE: 2014
